FAERS Safety Report 25497225 (Version 3)
Quarter: 2025Q3

REPORT INFORMATION
  Report Type: Spontaneous
  Country: CN (occurrence: CN)
  Receive Date: 20250701
  Receipt Date: 20250819
  Transmission Date: 20251020
  Serious: Yes (Other)
  Sender: GLAXOSMITHKLINE
  Company Number: CN-GLAXOSMITHKLINE INC-CN2025APC079025

PATIENT
  Sex: Male
  Weight: 62.5 kg

DRUGS (1)
  1. TRELEGY ELLIPTA [Suspect]
     Active Substance: FLUTICASONE FUROATE\UMECLIDINIUM BROMIDE\VILANTEROL TRIFENATATE
     Indication: Chronic obstructive pulmonary disease
     Dosage: 1 PUFF(S), QD

REACTIONS (5)
  - Diabetes mellitus [Not Recovered/Not Resolved]
  - Wrong technique in device usage process [Unknown]
  - Incorrect dose administered [Unknown]
  - Off label use [Unknown]
  - Product complaint [Unknown]

NARRATIVE: CASE EVENT DATE: 20250501
